FAERS Safety Report 14778654 (Version 1)
Quarter: 2018Q2

REPORT INFORMATION
  Report Type: Spontaneous
  Country: US (occurrence: US)
  Receive Date: 20180419
  Receipt Date: 20180419
  Transmission Date: 20180711
  Serious: Yes (Other)
  Sender: FDA-Public Use
  Company Number: US-PFIZER INC-2018156591

PATIENT
  Age: 44 Year
  Sex: Male

DRUGS (6)
  1. METRONIDAZOLE. [Concomitant]
     Active Substance: METRONIDAZOLE
     Indication: ALPHA HAEMOLYTIC STREPTOCOCCAL INFECTION
     Dosage: UNK
  2. LEVOFLOXACIN. [Concomitant]
     Active Substance: LEVOFLOXACIN
     Indication: ALPHA HAEMOLYTIC STREPTOCOCCAL INFECTION
     Dosage: UNK
  3. FLUCONAZOLE. [Concomitant]
     Active Substance: FLUCONAZOLE
     Indication: ALPHA HAEMOLYTIC STREPTOCOCCAL INFECTION
     Dosage: UNK
  4. VANCOMYCIN [Concomitant]
     Active Substance: VANCOMYCIN
     Indication: ALPHA HAEMOLYTIC STREPTOCOCCAL INFECTION
     Dosage: UNK
  5. CARBOPLATIN. [Suspect]
     Active Substance: CARBOPLATIN
     Indication: OESOPHAGEAL SQUAMOUS CELL CARCINOMA
     Dosage: UNK
     Dates: start: 201508, end: 201509
  6. PACLITAXEL. [Suspect]
     Active Substance: PACLITAXEL
     Indication: OESOPHAGEAL SQUAMOUS CELL CARCINOMA
     Dosage: UNK
     Dates: start: 201508, end: 201509

REACTIONS (1)
  - Sporotrichosis [Recovering/Resolving]
